FAERS Safety Report 18202110 (Version 2)
Quarter: 2020Q3

REPORT INFORMATION
  Report Type: Spontaneous
  Country: US (occurrence: US)
  Receive Date: 20200827
  Receipt Date: 20200929
  Transmission Date: 20201103
  Serious: No
  Sender: FDA-Public Use
  Company Number: US-PFIZER INC-2020328262

PATIENT
  Age: 74 Year
  Sex: Female
  Weight: 59.42 kg

DRUGS (1)
  1. XELJANZ [Suspect]
     Active Substance: TOFACITINIB CITRATE
     Indication: COLITIS ULCERATIVE
     Dosage: 20 MG, DAILY [TWO 5MG TABLETS IN THE MORNING AND TWO 5MG TABLETS IN THE EVENING]
     Route: 048
     Dates: start: 20200813

REACTIONS (3)
  - Fatigue [Unknown]
  - Headache [Unknown]
  - Product dispensing error [Unknown]
